FAERS Safety Report 5450394-3 (Version None)
Quarter: 2007Q3

REPORT INFORMATION
  Report Type: 
  Country: None (occurrence: None)
  Receive Date: 20070912
  Receipt Date: 20070831
  Transmission Date: 20080115
  Serious: Yes (Other)
  Sender: FDA-Public Use
  Company Number: US-PFIZER INC-2007074434

PATIENT
  Sex: Female
  Weight: 90.7 kg

DRUGS (3)
  1. CHANTIX [Suspect]
     Dates: start: 20070829, end: 20070830
  2. XANAX [Concomitant]
  3. WELLBUTRIN [Concomitant]

REACTIONS (2)
  - DRUG ERUPTION [None]
  - PANIC REACTION [None]
